FAERS Safety Report 10044363 (Version 1)
Quarter: 2014Q1

REPORT INFORMATION
  Report Type: Spontaneous
  Country: CL (occurrence: CL)
  Receive Date: 20140328
  Receipt Date: 20140328
  Transmission Date: 20141002
  Serious: Yes (Other)
  Sender: FDA-Public Use
  Company Number: CL-PFIZER INC-2014084452

PATIENT
  Age: 66 Year
  Sex: Female

DRUGS (3)
  1. XALATAN [Suspect]
     Indication: GLAUCOMA
     Dosage: 1 DROP, 1X/DAY
     Route: 047
     Dates: start: 2002
  2. PIASCLEDINE [Concomitant]
     Dosage: UNK
     Dates: start: 2008
  3. COLAGEN [Concomitant]
     Dosage: UNK
     Dates: start: 2012

REACTIONS (4)
  - Hernia [Not Recovered/Not Resolved]
  - Deafness [Not Recovered/Not Resolved]
  - Hearing aid user [Not Recovered/Not Resolved]
  - Depression [Not Recovered/Not Resolved]
